FAERS Safety Report 8192855-2 (Version None)
Quarter: 2012Q1

REPORT INFORMATION
  Report Type: 
  Country: None (occurrence: None)
  Receive Date: 20120308
  Receipt Date: 20120228
  Transmission Date: 20120608
  Serious: Yes (Hospitalization)
  Sender: FDA-Public Use
  Company Number: CA-JNJFOC-20120214604

PATIENT
  Sex: Female
  Weight: 60 kg

DRUGS (10)
  1. EXTRA STRENGTH TYLENOL [Concomitant]
     Route: 065
  2. VITAMIN D [Concomitant]
     Route: 065
  3. REMICADE [Suspect]
     Indication: COLITIS
     Route: 042
     Dates: start: 20030403
  4. REMICADE [Suspect]
     Indication: CROHN'S DISEASE
     Route: 042
     Dates: start: 20030403
  5. QUESTRAN [Concomitant]
     Route: 065
  6. CALCIUM [Concomitant]
     Route: 065
  7. FOLIC ACID [Concomitant]
     Route: 065
  8. METHOTREXATE [Concomitant]
     Route: 058
  9. DIDROCAL [Concomitant]
     Route: 065
  10. IRON [Concomitant]
     Route: 065

REACTIONS (1)
  - OVARIAN CYST [None]
